FAERS Safety Report 18199753 (Version 1)
Quarter: 2020Q3

REPORT INFORMATION
  Report Type: Report from Study
  Country: CN (occurrence: CN)
  Receive Date: 20200826
  Receipt Date: 20200826
  Transmission Date: 20201103
  Serious: Yes (Other)
  Sender: FDA-Public Use
  Company Number: CN-ASTRAZENECA-2020SF06395

PATIENT

DRUGS (2)
  1. COMPOUND IPRATROPIUM BROMIDE [Suspect]
     Active Substance: IPRATROPIUM BROMIDE
     Indication: PNEUMONIA
     Dosage: (2.5 ML/BRANCH)1.25 ML/TIME
     Route: 055
  2. BUDESONIDE SUSPENSION [Suspect]
     Active Substance: BUDESONIDE
     Indication: PNEUMONIA
     Dosage: (2 ML, 1 MG) 1 ML/TIME
     Route: 055

REACTIONS (1)
  - Cardiac failure [Unknown]
